FAERS Safety Report 7401247-2 (Version None)
Quarter: 2011Q2

REPORT INFORMATION
  Report Type: 
  Country: None (occurrence: None)
  Receive Date: 20110407
  Receipt Date: 20110328
  Transmission Date: 20111010
  Serious: Yes (Hospitalization, Other)
  Sender: FDA-Public Use
  Company Number: US-ELI_LILLY_AND_COMPANY-US201103008744

PATIENT
  Sex: Male

DRUGS (8)
  1. LANTUS [Concomitant]
     Dosage: UNK, EACH EVENING
  2. GLIPIZIDE [Concomitant]
     Indication: DIABETES MELLITUS
  3. DIURETICS [Concomitant]
  4. ANTIHYPERTENSIVES [Concomitant]
  5. LIPID MODIFYING AGENTS [Concomitant]
  6. POTASSIUM [Concomitant]
  7. HYDROCODONE [Concomitant]
     Indication: PAIN
  8. GEMZAR [Suspect]
     Indication: LUNG NEOPLASM MALIGNANT

REACTIONS (3)
  - TREMOR [None]
  - RENAL FAILURE [None]
  - ADVERSE REACTION [None]
